FAERS Safety Report 24693045 (Version 1)
Quarter: 2024Q4

REPORT INFORMATION
  Report Type: Spontaneous
  Country: PL (occurrence: PL)
  Receive Date: 20241203
  Receipt Date: 20241203
  Transmission Date: 20250115
  Serious: Yes (Other)
  Sender: BAUSCH AND LOMB
  Company Number: PL-MLMSERVICE-20241120-PI264967-00117-1

PATIENT
  Age: 5 Decade
  Sex: Male

DRUGS (9)
  1. DEXAMETHASONE [Suspect]
     Active Substance: DEXAMETHASONE
     Indication: Premedication
     Route: 065
     Dates: start: 2021
  2. VINCRISTINE [Concomitant]
     Active Substance: VINCRISTINE
     Indication: Ewing^s sarcoma
     Dosage: 5 CYCLES
     Route: 065
     Dates: start: 2021, end: 202202
  3. DOXORUBICIN [Concomitant]
     Active Substance: DOXORUBICIN
     Indication: Ewing^s sarcoma
     Dosage: 5 CYCLES
     Route: 065
     Dates: start: 2021, end: 202202
  4. CYCLOPHOSPHAMIDE [Concomitant]
     Active Substance: CYCLOPHOSPHAMIDE
     Indication: Ewing^s sarcoma
     Dosage: 5 CYCLES
     Route: 065
     Dates: start: 2021, end: 202202
  5. ETOPOSIDE [Concomitant]
     Active Substance: ETOPOSIDE
     Indication: Ewing^s sarcoma
     Dosage: 7 CYCLES
     Route: 065
     Dates: start: 2021, end: 2022
  6. IFOSFAMIDE [Concomitant]
     Active Substance: IFOSFAMIDE
     Indication: Ewing^s sarcoma
     Dosage: 7 CYCLES
     Route: 065
     Dates: start: 2021, end: 2022
  7. APREPITANT [Concomitant]
     Active Substance: APREPITANT
     Indication: Chemotherapy side effect prophylaxis
     Route: 065
     Dates: start: 2021
  8. ONDANSETRON [Concomitant]
     Active Substance: ONDANSETRON
     Indication: Chemotherapy side effect prophylaxis
     Route: 065
     Dates: start: 2021
  9. FILGRASTIM [Concomitant]
     Active Substance: FILGRASTIM
     Indication: Chemotherapy side effect prophylaxis
     Dosage: FOR 3 DAYS AFTER CHEMOTHERAPY, STARTING 72H AFTER CHEMOTHERAPY
     Route: 065
     Dates: start: 2021

REACTIONS (3)
  - Spinal disorder [Recovered/Resolved]
  - Osteoporosis [Recovered/Resolved]
  - Spinal compression fracture [Recovered/Resolved]
